FAERS Safety Report 5958012-2 (Version None)
Quarter: 2008Q4

REPORT INFORMATION
  Report Type: 
  Country: None (occurrence: None)
  Receive Date: 20081119
  Receipt Date: 20081110
  Transmission Date: 20090506
  Serious: Yes (Other)
  Sender: FDA-Public Use
  Company Number: PHEH2008US09674

PATIENT
  Sex: Female

DRUGS (1)
  1. RECLAST [Suspect]
     Indication: OSTEOPOROSIS
     Dosage: 5 MG, ONCE/SINGLE
     Route: 042
     Dates: start: 20080101

REACTIONS (5)
  - ABSCESS [None]
  - BIOPSY [None]
  - BONE GRAFT [None]
  - OSTEONECROSIS [None]
  - PRIMARY SEQUESTRUM [None]
